FAERS Safety Report 12343492 (Version 2)
Quarter: 2016Q2

REPORT INFORMATION
  Report Type: Spontaneous
  Country: US (occurrence: US)
  Receive Date: 20160506
  Receipt Date: 20160627
  Transmission Date: 20160815
  Serious: No
  Sender: FDA-Public Use
  Company Number: US-GLAXOSMITHKLINE-US2016GSK058489

PATIENT
  Sex: Female

DRUGS (10)
  1. ISOSORBIDE. [Concomitant]
     Active Substance: ISOSORBIDE
  2. GLIMEPIRIDE. [Concomitant]
     Active Substance: GLIMEPIRIDE
  3. METFORMIN [Concomitant]
     Active Substance: METFORMIN HYDROCHLORIDE
  4. ATORVASTATIN [Concomitant]
     Active Substance: ATORVASTATIN
  5. CARVEDILOL. [Concomitant]
     Active Substance: CARVEDILOL
  6. LOSARTAN. [Concomitant]
     Active Substance: LOSARTAN
  7. METOLAZONE. [Concomitant]
     Active Substance: METOLAZONE
  8. ADVAIR DISKUS [Suspect]
     Active Substance: FLUTICASONE PROPIONATE\SALMETEROL XINAFOATE
     Indication: PULMONARY OEDEMA
     Dosage: 1 PUFF(S), UNK
     Route: 055
     Dates: start: 20160419, end: 20160422
  9. NOVOLIN R [Concomitant]
     Active Substance: INSULIN HUMAN
  10. CLOPIDOGREL [Concomitant]
     Active Substance: CLOPIDOGREL BISULFATE

REACTIONS (3)
  - Drug ineffective [Recovered/Resolved]
  - Overdose [Recovered/Resolved]
  - Device use error [Recovered/Resolved]
